FAERS Safety Report 7712877-2 (Version None)
Quarter: 2011Q3

REPORT INFORMATION
  Report Type: 
  Country: None (occurrence: None)
  Receive Date: 20110826
  Receipt Date: 20110818
  Transmission Date: 20111222
  Serious: Yes (Hospitalization, Other)
  Sender: FDA-Public Use
  Company Number: PHEH2005US09403

PATIENT
  Sex: Female

DRUGS (76)
  1. PAXIL [Concomitant]
  2. INFLUENZA VACCINE [Concomitant]
  3. KEFLEX [Concomitant]
  4. FOLIC ACID [Concomitant]
  5. ABRAXANE [Concomitant]
  6. DILAUDID [Concomitant]
  7. LACTULOSE [Concomitant]
  8. ROCEPHIN [Concomitant]
  9. ZITHROMAX [Concomitant]
  10. PREDNISONE [Concomitant]
  11. FEMARA [Concomitant]
     Dosage: 2.5 MG, QD
     Dates: start: 19960101, end: 20030201
  12. ANASTROZOLE [Concomitant]
     Dates: start: 20000101, end: 20050201
  13. ZOFRAN [Concomitant]
  14. INTRALIPID 10% [Concomitant]
  15. FENTANYL [Concomitant]
  16. DEMEROL [Concomitant]
  17. NORCO [Concomitant]
  18. TYLENOL-500 [Concomitant]
  19. ZOMETA [Suspect]
     Indication: METASTASES TO BONE
     Dosage: 4 MG, Q4 WKS
     Dates: start: 20030109, end: 20050801
  20. XELODA [Concomitant]
     Dates: start: 20030701, end: 20031201
  21. CHLORHEXIDINE GLUCONATE [Concomitant]
  22. HEPATITIS B VACCINE [Concomitant]
  23. GENTAMICIN [Concomitant]
  24. AUGMENTIN '125' [Concomitant]
  25. AQUAMEPHYTON [Concomitant]
  26. BACTRIM DS [Concomitant]
  27. TRIAMTERENE [Concomitant]
  28. EFFEXOR [Concomitant]
  29. AREDIA [Suspect]
     Dates: start: 19960101, end: 20030201
  30. LORAZEPAM [Concomitant]
  31. ANCEF [Concomitant]
  32. BENADRYL ^ACHE^ [Concomitant]
  33. PEPCID [Concomitant]
  34. MACROBID [Concomitant]
  35. MYLANTA                                 /USA/ [Concomitant]
  36. IMODIUM [Concomitant]
  37. FUROSEMIDE [Concomitant]
  38. TORADOL [Concomitant]
  39. VITAMIN B-12 [Concomitant]
  40. VENLAFAXINE HYDROCHLORIDE [Concomitant]
  41. METHYLPREDNISOLONE [Concomitant]
  42. AVASTIN [Concomitant]
  43. PROCRIT                            /00909301/ [Concomitant]
  44. CATAPRES                                /UNK/ [Concomitant]
  45. CYTOXAN [Concomitant]
  46. ZOSYN [Concomitant]
  47. HUMULIN R [Concomitant]
  48. FLAGYL [Concomitant]
  49. LIDOCAINE [Concomitant]
  50. XELODA [Concomitant]
     Dosage: UNK, X 2
     Dates: start: 20040101, end: 20040201
  51. CYCLOBENZAPRINE [Concomitant]
  52. ANUSOL                                  /NET/ [Concomitant]
  53. BISACODYL [Concomitant]
  54. COLYTE ^REED^ [Concomitant]
  55. FLUOROURACIL [Concomitant]
  56. COMPAZINE [Concomitant]
  57. FORTAZ [Concomitant]
  58. TAGAMET [Concomitant]
  59. COLACE [Concomitant]
  60. PHENERGAN [Concomitant]
  61. METHOTREXATE [Concomitant]
  62. PERCOCET [Concomitant]
  63. DECADRON [Concomitant]
  64. POTASSIUM CHLORIDE [Concomitant]
  65. MOBIC [Concomitant]
  66. UNASYN [Concomitant]
  67. ZOLPIDEM [Concomitant]
  68. FASLODEX [Concomitant]
     Dates: start: 20050201
  69. IBUPROFEN [Concomitant]
  70. MEGACE [Concomitant]
  71. CELEXA [Concomitant]
  72. KLONOPIN [Concomitant]
  73. AROMASIN [Concomitant]
  74. NARCAN [Concomitant]
  75. MORPHINE [Concomitant]
  76. TEMAZEPAM [Concomitant]

REACTIONS (60)
  - GINGIVAL ERYTHEMA [None]
  - INSOMNIA [None]
  - BENIGN NEOPLASM OF THYROID GLAND [None]
  - ANAEMIA [None]
  - EMOTIONAL DISTRESS [None]
  - PAIN [None]
  - MASS [None]
  - PANCREATIC NEOPLASM [None]
  - TRAUMATIC HAEMATOMA [None]
  - DYSFUNCTIONAL UTERINE BLEEDING [None]
  - ATELECTASIS [None]
  - VOMITING [None]
  - FACIAL PAIN [None]
  - METASTASES TO ABDOMINAL CAVITY [None]
  - PLANTAR FASCIITIS [None]
  - FAECALOMA [None]
  - HAEMATURIA [None]
  - RENAL ATROPHY [None]
  - HAEMORRHAGE [None]
  - LYMPHADENOPATHY [None]
  - BONE DISORDER [None]
  - IMPAIRED HEALING [None]
  - FISTULA [None]
  - ANIMAL BITE [None]
  - PNEUMONIA [None]
  - DYSPNOEA [None]
  - OEDEMA MUCOSAL [None]
  - METASTASES TO LUNG [None]
  - NAUSEA [None]
  - GINGIVAL SWELLING [None]
  - SENSATION OF PRESSURE [None]
  - DEPRESSION [None]
  - ARTHRALGIA [None]
  - ANASTOMOTIC LEAK [None]
  - EDENTULOUS [None]
  - OEDEMA PERIPHERAL [None]
  - OSTEOMYELITIS [None]
  - GENERAL PHYSICAL HEALTH DETERIORATION [None]
  - DECREASED INTEREST [None]
  - ABDOMINAL PAIN [None]
  - GASTROINTESTINAL OBSTRUCTION [None]
  - MALNUTRITION [None]
  - FEBRILE NEUTROPENIA [None]
  - HYDRONEPHROSIS [None]
  - ANXIETY [None]
  - SYNCOPE [None]
  - SWELLING FACE [None]
  - PURULENT DISCHARGE [None]
  - PAIN IN JAW [None]
  - METASTASES TO BONE [None]
  - DEFAECATION URGENCY [None]
  - RASH PRURITIC [None]
  - COLON NEOPLASM [None]
  - COLONIC OBSTRUCTION [None]
  - SEROSITIS [None]
  - OSTEONECROSIS OF JAW [None]
  - LOCALISED INFECTION [None]
  - GRANULOMA [None]
  - URETERIC OBSTRUCTION [None]
  - PLEURAL EFFUSION [None]
